FAERS Safety Report 17593047 (Version 1)
Quarter: 2020Q1

REPORT INFORMATION
  Report Type: Spontaneous
  Country: US (occurrence: US)
  Receive Date: 20200327
  Receipt Date: 20200327
  Transmission Date: 20200409
  Serious: No
  Sender: FDA-Public Use
  Company Number: US-JUBILANT CADISTA PHARMACEUTICALS-2019JUB00098

PATIENT
  Sex: Female
  Weight: 62.59 kg

DRUGS (3)
  1. UNSPECIFIED MEDICATION FOR DYSTONIA [Concomitant]
  2. IRBESARTAN. [Suspect]
     Active Substance: IRBESARTAN
     Indication: HYPERTENSION
     Dosage: 300 MG, 1X/DAY
     Route: 048
  3. IRBESARTAN (SOLCO) [Suspect]
     Active Substance: IRBESARTAN
     Indication: HYPERTENSION
     Dosage: 300 MG, 1X/DAY
     Dates: end: 20190131

REACTIONS (5)
  - Oropharyngeal pain [Recovering/Resolving]
  - Bronchitis [Recovering/Resolving]
  - Insomnia [Unknown]
  - Dystonia [Unknown]
  - Cough [Recovering/Resolving]

NARRATIVE: CASE EVENT DATE: 2018
